FAERS Safety Report 9789703 (Version 1)
Quarter: 2013Q4

REPORT INFORMATION
  Report Type: Spontaneous
  Country: BR (occurrence: None)
  Receive Date: 20131227
  Receipt Date: 20131227
  Transmission Date: 20140711
  Serious: Yes (Hospitalization)
  Sender: FDA-Public Use
  Company Number: DSJ-2013-28579

PATIENT
  Age: 8 Decade
  Sex: Female
  Weight: 75 kg

DRUGS (5)
  1. BENICAR HCT [Suspect]
     Indication: HYPERTENSION
     Dosage: 20/12.5 MG (1 IN 1 D), PER ORAL
     Route: 048
     Dates: start: 2005, end: 20131216
  2. PANTOPRAZOLE [Concomitant]
  3. EVOTHYROXINE SODIUM (LEVOTHYROXINE SODIUM) [Concomitant]
  4. LORATADINE [Concomitant]
  5. DOMPERIDONE [Concomitant]

REACTIONS (3)
  - Osteoarthritis [None]
  - Drug ineffective [None]
  - Knee operation [None]
